FAERS Safety Report 15600669 (Version 7)
Quarter: 2019Q2

REPORT INFORMATION
  Report Type: Spontaneous
  Country: FI (occurrence: FI)
  Receive Date: 20181109
  Receipt Date: 20190523
  Transmission Date: 20190711
  Serious: Yes (Other)
  Sender: FDA-Public Use
  Company Number: FI-AUROBINDO-AUR-APL-2018-022470

PATIENT

DRUGS (32)
  1. ROSUVASTATIN ORION 20MG [Suspect]
     Active Substance: ROSUVASTATIN CALCIUM
     Indication: ANGIOPLASTY
     Dosage: 20 MILLIGRAM
     Route: 048
     Dates: start: 201801, end: 201802
  2. CLOPIDOGREL [Interacting]
     Active Substance: CLOPIDOGREL BISULFATE
     Dosage: UNK
     Route: 065
  3. PRIMASPAN [Suspect]
     Active Substance: ASPIRIN
     Indication: CEREBRAL INFARCTION
     Dosage: STRENGTH: 50 MG
     Route: 048
  4. SOMAC [Suspect]
     Active Substance: PANTOPRAZOLE SODIUM
     Indication: PRODUCT USED FOR UNKNOWN INDICATION
     Dosage: UNK
     Route: 065
  5. CLOPIDOGREL [Interacting]
     Active Substance: CLOPIDOGREL BISULFATE
     Indication: PRODUCT USED FOR UNKNOWN INDICATION
     Dosage: 1 DOSAGE FORM
     Route: 048
     Dates: start: 20180110, end: 201802
  6. BURANA [Suspect]
     Active Substance: IBUPROFEN
     Dosage: STRENGTH: 800 MG
     Route: 048
     Dates: start: 20161214
  7. PRIMASPAN [Suspect]
     Active Substance: ASPIRIN
     Dosage: STRENGTH: 50 MG
     Route: 048
  8. PRIMASPAN [Suspect]
     Active Substance: ASPIRIN
     Dosage: 50 MILLIGRAM, DAILY
     Route: 048
  9. THYROXIN [Suspect]
     Active Substance: LEVOTHYROXINE
     Indication: THYROID DISORDER
     Dosage: 1 TABLET ON 3 DAYS, HALF TABLET ON 4 DAYS; STRENGTH: 25 MCG
     Route: 048
     Dates: start: 20161214
  10. ZOLT (ZOLPIDEM TARTRATE) [Suspect]
     Active Substance: ZOLPIDEM TARTRATE
     Indication: GASTRIC DISORDER
     Dosage: 1 DOSAGE FORM
     Route: 048
     Dates: start: 20180110, end: 201802
  11. CLOPIDOGREL [Interacting]
     Active Substance: CLOPIDOGREL BISULFATE
     Indication: PRODUCT USED FOR UNKNOWN INDICATION
     Dosage: STRENGTH: 75 MG
     Route: 048
     Dates: start: 20180110, end: 201803
  12. BURANA [Suspect]
     Active Substance: IBUPROFEN
     Dosage: STRENGTH: 800 MG, 3, ONCE A DAY
     Route: 048
     Dates: start: 20161214
  13. ROSUVASTATIN ORION 20MG [Interacting]
     Active Substance: ROSUVASTATIN CALCIUM
     Dosage: STRENGTH- 20 MG
     Route: 065
  14. ZOLT (ZOLPIDEM TARTRATE) [Suspect]
     Active Substance: ZOLPIDEM TARTRATE
     Dosage: 30 MG X 1
     Route: 048
     Dates: start: 201801
  15. ZOLT (ZOLPIDEM TARTRATE) [Suspect]
     Active Substance: ZOLPIDEM TARTRATE
     Dosage: UNK
     Route: 065
  16. BURANA [Suspect]
     Active Substance: IBUPROFEN
     Indication: MUSCULOSKELETAL PAIN
     Dosage: STRENGTH: 800 MG ()
     Route: 048
     Dates: start: 20161214
  17. ROSUVASTATIN ORION 20MG [Interacting]
     Active Substance: ROSUVASTATIN CALCIUM
     Dosage: STRENGTH: 40 MG; 20 MG X 1
     Route: 048
     Dates: start: 20180110, end: 201802
  18. PRIMASPAN [Suspect]
     Active Substance: ASPIRIN
     Dosage: UNK
  19. THYROXIN [Suspect]
     Active Substance: LEVOTHYROXINE
     Indication: MUSCULOSKELETAL PAIN
     Dosage: UNK
  20. THYROXIN [Suspect]
     Active Substance: LEVOTHYROXINE
     Dosage: 1 TABLET ON 3 DAYS, HALF TABLET ON 4 DAYS; STRENGTH: 25 MCG
     Route: 048
     Dates: start: 20161214
  21. ROSUVASTATIN ORION 20MG [Interacting]
     Active Substance: ROSUVASTATIN CALCIUM
     Dosage: UNK
     Route: 065
  22. CLOPIDOGREL [Interacting]
     Active Substance: CLOPIDOGREL BISULFATE
     Dosage: 2 DOSAGE FORM, ONCE A DAY
     Route: 048
     Dates: start: 20180110, end: 201804
  23. PRIMASPAN [Suspect]
     Active Substance: ASPIRIN
     Dosage: 100 MILLIGRAM, ONCE A DAY
     Route: 048
  24. THYROXIN [Suspect]
     Active Substance: LEVOTHYROXINE
     Dosage: 1 TABLET ON 3 DAYS, HALF TABLET ON 4 DAYS; STRENGTH: 25 MCG
     Route: 048
  25. OPAMOX [Suspect]
     Active Substance: OXAZEPAM
     Indication: PRODUCT USED FOR UNKNOWN INDICATION
     Dosage: UNK
  26. CLOPIDOGREL [Interacting]
     Active Substance: CLOPIDOGREL BISULFATE
     Dosage: STRENGTH: 75 MG
     Route: 048
     Dates: start: 20180110, end: 201804
  27. CLOPIDOGREL [Interacting]
     Active Substance: CLOPIDOGREL BISULFATE
     Dosage: STRENGTH: 75 MG
     Route: 048
     Dates: start: 20180110, end: 201803
  28. CLOPIDOGREL [Interacting]
     Active Substance: CLOPIDOGREL BISULFATE
     Dosage: 75 MG X 1
     Route: 048
     Dates: start: 201801
  29. ZOLT (ZOLPIDEM TARTRATE) [Suspect]
     Active Substance: ZOLPIDEM TARTRATE
     Indication: ABDOMINAL DISCOMFORT
     Dosage: STRENGTH: 30 MG
     Route: 048
     Dates: start: 20180110, end: 201803
  30. HISTEC [Suspect]
     Active Substance: CETIRIZINE HYDROCHLORIDE
     Indication: PRODUCT USED FOR UNKNOWN INDICATION
     Dosage: DAILY
     Route: 065
  31. DULOXETINE. [Suspect]
     Active Substance: DULOXETINE
     Indication: PRODUCT USED FOR UNKNOWN INDICATION
     Dosage: UNK
     Route: 065
  32. PANADOL [Concomitant]
     Active Substance: ACETAMINOPHEN
     Indication: PRODUCT USED FOR UNKNOWN INDICATION
     Dosage: UNK
     Route: 065

REACTIONS (44)
  - Loss of control of legs [Unknown]
  - Amnesia [Not Recovered/Not Resolved]
  - Product prescribing error [Unknown]
  - Weight decreased [Unknown]
  - Arthralgia [Not Recovered/Not Resolved]
  - Malaise [Unknown]
  - Muscle spasms [Not Recovered/Not Resolved]
  - Paraesthesia [Not Recovered/Not Resolved]
  - Gait inability [Not Recovered/Not Resolved]
  - Vision blurred [Not Recovered/Not Resolved]
  - Facial pain [Not Recovered/Not Resolved]
  - Myalgia [Not Recovered/Not Resolved]
  - Eye colour change [Not Recovered/Not Resolved]
  - Condition aggravated [Not Recovered/Not Resolved]
  - Muscle strain [Unknown]
  - Pain in extremity [Unknown]
  - Diverticulitis [Not Recovered/Not Resolved]
  - Osteoarthritis [Not Recovered/Not Resolved]
  - Rash papular [Not Recovered/Not Resolved]
  - Nerve compression [Not Recovered/Not Resolved]
  - Hernia [Unknown]
  - Scleral discolouration [Not Recovered/Not Resolved]
  - Palmar erythema [Unknown]
  - Angina pectoris [Unknown]
  - Haematoma [Not Recovered/Not Resolved]
  - Drug interaction [Unknown]
  - Inflammatory marker increased [Unknown]
  - Muscle twitching [Not Recovered/Not Resolved]
  - Confusional state [Unknown]
  - Asthenia [Not Recovered/Not Resolved]
  - Abdominal distension [Unknown]
  - Abdominal discomfort [Unknown]
  - Rash macular [Not Recovered/Not Resolved]
  - Headache [Not Recovered/Not Resolved]
  - Palpitations [Not Recovered/Not Resolved]
  - Thyroid function test abnormal [Unknown]
  - Movement disorder [Not Recovered/Not Resolved]
  - Acne [Recovered/Resolved]
  - Dyspnoea [Recovered/Resolved]
  - Facial spasm [Not Recovered/Not Resolved]
  - Nervous system disorder [Unknown]
  - Hypotension [Unknown]
  - Muscular weakness [Unknown]
  - Abdominal pain upper [Not Recovered/Not Resolved]

NARRATIVE: CASE EVENT DATE: 2016
